FAERS Safety Report 8602275-1 (Version None)
Quarter: 2012Q3

REPORT INFORMATION
  Report Type: 
  Country: None (occurrence: None)
  Receive Date: 20120817
  Receipt Date: 20120807
  Transmission Date: 20120928
  Serious: Yes (Hospitalization, Other)
  Sender: FDA-Public Use
  Company Number: US-ABBOTT-12P-163-0966731-00

PATIENT
  Sex: Female
  Weight: 74.91 kg

DRUGS (10)
  1. HUMIRA [Suspect]
     Indication: ANKYLOSING SPONDYLITIS
     Dates: start: 20110915, end: 20111201
  2. TRAMADOL HCL [Concomitant]
     Indication: PAIN
  3. VITAMIN D [Concomitant]
     Indication: VITAMIN SUPPLEMENTATION
  4. TYLENOL [Concomitant]
     Indication: PAIN
  5. PENNSAID [Concomitant]
     Indication: MYALGIA
     Route: 061
  6. HUMIRA [Suspect]
     Indication: RHEUMATOID ARTHRITIS
     Dates: start: 20120101
  7. CALCIUM CARBONATE [Concomitant]
     Indication: MINERAL SUPPLEMENTATION
  8. EVOXAC [Concomitant]
     Indication: DRY MOUTH
  9. NEOMYSIN MOUTH WASH [Concomitant]
     Indication: DRY MOUTH
  10. TAMOXIFEN CITRATE [Suspect]
     Indication: BREAST HYPERPLASIA
     Dates: start: 20070701, end: 20120326

REACTIONS (21)
  - ABDOMINAL PAIN [None]
  - DYSPNOEA [None]
  - FAECES PALE [None]
  - HEPATIC ENZYME DECREASED [None]
  - DEEP VEIN THROMBOSIS [None]
  - ARTHRALGIA [None]
  - JOINT STIFFNESS [None]
  - HYPOPHAGIA [None]
  - ABDOMINAL PAIN UPPER [None]
  - ANXIETY [None]
  - DYSPEPSIA [None]
  - GASTROINTESTINAL ULCER [None]
  - MUSCULOSKELETAL STIFFNESS [None]
  - CHEST PAIN [None]
  - BENIGN BREAST NEOPLASM [None]
  - FIBROMYALGIA [None]
  - PALLOR [None]
  - NEUROPATHY PERIPHERAL [None]
  - IRRITABLE BOWEL SYNDROME [None]
  - CHEST DISCOMFORT [None]
  - PULMONARY EMBOLISM [None]
